FAERS Safety Report 5874105-2 (Version None)
Quarter: 2008Q3

REPORT INFORMATION
  Report Type: 
  Country: None (occurrence: None)
  Receive Date: 20080829
  Receipt Date: 20071129
  Transmission Date: 20090109
  Serious: Yes (Other)
  Sender: FDA-Public Use
  Company Number: 2008S1010893

PATIENT
  Age: 45 Year
  Sex: Female

DRUGS (2)
  1. CLARITHROMYCIN [Suspect]
     Indication: LOWER RESPIRATORY TRACT INFECTION
     Dosage: 500 MG
     Dates: start: 20061029, end: 20061031
  2. NRATRIPTAN (NARATRIPTAN) (CON.) [Concomitant]

REACTIONS (4)
  - DIARRHOEA [None]
  - HAEMORRHAGE [None]
  - THROMBOCYTOPENIA [None]
  - VOMITING [None]
